FAERS Safety Report 10363900 (Version 3)
Quarter: 2015Q1

REPORT INFORMATION
  Report Type: Spontaneous
  Country: US (occurrence: US)
  Receive Date: 20140805
  Receipt Date: 20150216
  Transmission Date: 20150720
  Serious: Yes (Hospitalization, Other)
  Sender: FDA-Public Use
  Company Number: US-GILEAD-2014-0110729

PATIENT
  Age: 50 Year
  Sex: Female

DRUGS (3)
  1. REVATIO [Concomitant]
     Active Substance: SILDENAFIL CITRATE
  2. LETAIRIS [Suspect]
     Active Substance: AMBRISENTAN
     Indication: PRODUCT USED FOR UNKNOWN INDICATION
     Dosage: 10 MG, QD
     Route: 065
     Dates: start: 20140722
  3. TYVASO [Concomitant]
     Active Substance: TREPROSTINIL

REACTIONS (7)
  - Cardiac disorder [Unknown]
  - Pain [Unknown]
  - Cardiac failure [Unknown]
  - Heart rate increased [Unknown]
  - Headache [Unknown]
  - Dyspnoea [Unknown]
  - Viral infection [Unknown]
